FAERS Safety Report 9153451 (Version 1)
Quarter: 2013Q1

REPORT INFORMATION
  Report Type: Spontaneous
  Country: US (occurrence: None)
  Receive Date: 20130204
  Receipt Date: 20130204
  Transmission Date: 20140127
  Serious: Yes (Life-Threatening)
  Sender: FDA-Public Use
  Company Number: TUK2013A00018

PATIENT
  Age: 58 Year
  Sex: Male

DRUGS (5)
  1. PIOGLITAZONE [Suspect]
     Route: 048
     Dates: start: 20110411, end: 20120716
  2. DOXYCYCLINE (DOXYCYCLINE) [Concomitant]
  3. GABAPENTIN (GABAPENTIN) [Concomitant]
  4. GLIMEPIRIDE (GLIMEPIRIDE) [Concomitant]
  5. VARDENAFIL (VARDENAFIL) [Concomitant]

REACTIONS (2)
  - Renal cell carcinoma [None]
  - Metastases to pancreas [None]
